FAERS Safety Report 6494530-9 (Version None)
Quarter: 2009Q4

REPORT INFORMATION
  Report Type: 
  Country: None (occurrence: None)
  Receive Date: 20091214
  Receipt Date: 20090227
  Transmission Date: 20100525
  Serious: No
  Sender: FDA-Public Use
  Company Number: US-BRISTOL-MYERS SQUIBB COMPANY-14524698

PATIENT
  Sex: Male

DRUGS (3)
  1. ABILIFY [Suspect]
     Indication: MAJOR DEPRESSION
     Dosage: REDUCED TO 5 MG QD
  2. PROZAC [Concomitant]
  3. LITHIUM [Concomitant]

REACTIONS (1)
  - URINE ANALYSIS ABNORMAL [None]
